FAERS Safety Report 20869953 (Version 1)
Quarter: 2022Q2

REPORT INFORMATION
  Report Type: Spontaneous
  Country: US (occurrence: US)
  Receive Date: 20220525
  Receipt Date: 20220525
  Transmission Date: 20220721
  Serious: No
  Sender: FDA-Public Use
  Company Number: US-AMGEN-USASP2022078593

PATIENT
  Age: 77 Year
  Sex: Female

DRUGS (1)
  1. PROLIA [Suspect]
     Active Substance: DENOSUMAB
     Indication: Osteoporosis postmenopausal
     Dosage: UNK
     Route: 065
     Dates: start: 2018

REACTIONS (5)
  - Oral discomfort [Unknown]
  - Tooth fracture [Unknown]
  - Tooth disorder [Unknown]
  - Gingival bleeding [Unknown]
  - Tooth infection [Unknown]

NARRATIVE: CASE EVENT DATE: 20210401
